FAERS Safety Report 19494064 (Version 2)
Quarter: 2021Q3

REPORT INFORMATION
  Report Type: Spontaneous
  Country: FR (occurrence: FR)
  Receive Date: 20210705
  Receipt Date: 20210712
  Transmission Date: 20211014
  Serious: Yes (Hospitalization)
  Sender: FDA-Public Use
  Company Number: FR-TAKEDA-2021TUS034365

PATIENT
  Age: 12 Year
  Sex: Male

DRUGS (10)
  1. CINRYZE [Suspect]
     Active Substance: HUMAN C1-ESTERASE INHIBITOR
     Dosage: UNK
     Route: 065
     Dates: start: 20200804, end: 20210509
  2. TAKHZYRO [Suspect]
     Active Substance: LANADELUMAB-FLYO
     Dosage: UNK
     Route: 065
     Dates: start: 20210515
  3. CINRYZE [Suspect]
     Active Substance: HUMAN C1-ESTERASE INHIBITOR
     Indication: PRODUCT USED FOR UNKNOWN INDICATION
     Dosage: UNK
     Route: 042
  4. CINRYZE [Suspect]
     Active Substance: HUMAN C1-ESTERASE INHIBITOR
     Indication: PRODUCT USED FOR UNKNOWN INDICATION
     Dosage: UNK
     Route: 042
  5. CINRYZE [Suspect]
     Active Substance: HUMAN C1-ESTERASE INHIBITOR
     Dosage: UNK
     Route: 065
     Dates: start: 20200804, end: 20210509
  6. FIRAZYR [Suspect]
     Active Substance: ICATIBANT ACETATE
     Indication: HEREDITARY ANGIOEDEMA
     Route: 050
  7. CINRYZE [Suspect]
     Active Substance: HUMAN C1-ESTERASE INHIBITOR
     Indication: PRODUCT USED FOR UNKNOWN INDICATION
     Dosage: UNK
     Route: 042
  8. CINRYZE [Suspect]
     Active Substance: HUMAN C1-ESTERASE INHIBITOR
     Dosage: UNK
     Route: 065
     Dates: start: 20200804, end: 20210509
  9. TAKHZYRO [Suspect]
     Active Substance: LANADELUMAB-FLYO
     Indication: HEREDITARY ANGIOEDEMA
     Dosage: UNK
     Route: 050
  10. FIRAZYR [Suspect]
     Active Substance: ICATIBANT ACETATE
     Indication: HEREDITARY ANGIOEDEMA
     Route: 050

REACTIONS (4)
  - Hospitalisation [Recovered/Resolved]
  - Hereditary angioedema [Unknown]
  - Injection site rash [Unknown]
  - Injection site pain [Unknown]

NARRATIVE: CASE EVENT DATE: 20210515
